FAERS Safety Report 17553434 (Version 3)
Quarter: 2020Q3

REPORT INFORMATION
  Report Type: Spontaneous
  Country: MM (occurrence: MM)
  Receive Date: 20200317
  Receipt Date: 20200921
  Transmission Date: 20201102
  Serious: Yes (Hospitalization)
  Sender: FDA-Public Use
  Company Number: MM-JNJFOC-20200308351

PATIENT
  Age: 50 Year
  Sex: Female
  Weight: 36 kg

DRUGS (32)
  1. PYRAZINAMIDE. [Suspect]
     Active Substance: PYRAZINAMIDE
     Route: 065
     Dates: start: 20200313
  2. CLOPILET                           /01220701/ [Concomitant]
     Indication: CARDIAC FAILURE CONGESTIVE
     Route: 048
     Dates: start: 20200218
  3. FRUSEMIDE                          /00032601/ [Concomitant]
     Active Substance: FUROSEMIDE
     Route: 048
     Dates: start: 20200226
  4. RECORMON                           /00928301/ [Concomitant]
     Indication: CHRONIC KIDNEY DISEASE
     Dosage: 1 VIAL SC 2 WEEKLY
     Route: 058
     Dates: start: 20200303
  5. TOTHEMA [Concomitant]
     Active Substance: COPPER GLUCONATE\FERROUS GLUCONATE\MANGANESE GLUCONATE
     Indication: CHRONIC KIDNEY DISEASE
     Dosage: 2 AMP BD PO
     Route: 048
     Dates: start: 20200525
  6. FRUSEMIDE                          /00032601/ [Concomitant]
     Active Substance: FUROSEMIDE
     Indication: CHRONIC KIDNEY DISEASE
     Route: 042
     Dates: start: 20200218, end: 20200226
  7. LINEZOLID. [Suspect]
     Active Substance: LINEZOLID
     Indication: TUBERCULOSIS
     Route: 065
     Dates: start: 20180813, end: 20181108
  8. GLARVIA [Concomitant]
     Dosage: 10 UNITS
     Route: 058
     Dates: start: 20200330, end: 20200529
  9. GLARVIA [Concomitant]
     Dosage: 12 UNITS
     Route: 058
     Dates: start: 20200529
  10. FERROVIT                           /00023501/ [Concomitant]
     Indication: ANAEMIA
     Route: 048
     Dates: start: 20180709, end: 20200525
  11. ASPRIN [Concomitant]
     Active Substance: ASPIRIN
     Indication: CARDIAC FAILURE CONGESTIVE
     Route: 048
     Dates: start: 20200218
  12. DELAMANID [Suspect]
     Active Substance: DELAMANID
     Indication: TUBERCULOSIS
     Route: 065
     Dates: start: 20180813, end: 20200226
  13. PARA?AMINOSALICYLIC ACID [Suspect]
     Active Substance: AMINOSALICYLIC ACID
     Indication: TUBERCULOSIS
     Route: 065
     Dates: start: 20180813, end: 20181017
  14. HYDROCORTISONE. [Concomitant]
     Active Substance: HYDROCORTISONE
     Indication: SUPPORTIVE CARE
     Route: 042
     Dates: start: 20200218, end: 20200229
  15. NITROL                             /00003201/ [Concomitant]
     Indication: CARDIAC FAILURE CONGESTIVE
     Route: 060
     Dates: start: 20200219, end: 20200221
  16. CLOFAZIMINE [Suspect]
     Active Substance: CLOFAZIMINE
     Indication: TUBERCULOSIS
     Route: 065
     Dates: start: 20180813, end: 20200226
  17. AMOXICILLIN TRIHYDRATE [Suspect]
     Active Substance: AMOXICILLIN
     Indication: TUBERCULOSIS
     Route: 065
     Dates: start: 20180813
  18. GABAPENTIN. [Concomitant]
     Active Substance: GABAPENTIN
     Indication: SUPPORTIVE CARE
     Route: 048
     Dates: start: 20200219
  19. CITALOPRAM [Concomitant]
     Active Substance: CITALOPRAM HYDROBROMIDE
     Indication: MENTAL DISORDER
     Route: 048
     Dates: start: 20191017
  20. BEDAQUILINE [Suspect]
     Active Substance: BEDAQUILINE
     Indication: TUBERCULOSIS
     Route: 048
     Dates: start: 20180813, end: 20200226
  21. DELAMANID [Suspect]
     Active Substance: DELAMANID
     Route: 065
     Dates: start: 20200326, end: 20200630
  22. CLOFAZIMINE [Suspect]
     Active Substance: CLOFAZIMINE
     Route: 065
     Dates: start: 20200226, end: 20200630
  23. PYRAZINAMIDE. [Suspect]
     Active Substance: PYRAZINAMIDE
     Indication: TUBERCULOSIS
     Route: 065
     Dates: start: 20180813, end: 20200221
  24. NEWPENEM [Suspect]
     Active Substance: CILASTATIN SODIUM\IMIPENEM
     Indication: TUBERCULOSIS
     Route: 065
     Dates: start: 20180813, end: 20190823
  25. MIXTARD                            /00806401/ [Concomitant]
     Active Substance: INSULIN HUMAN
     Indication: DIABETES MELLITUS
     Dosage: 18 UNITS
     Route: 058
     Dates: start: 20200218, end: 20200330
  26. SALBUTAMOL [Concomitant]
     Active Substance: ALBUTEROL
     Indication: SUPPORTIVE CARE
     Dates: start: 20200218, end: 20200320
  27. BEDAQUILINE [Suspect]
     Active Substance: BEDAQUILINE
     Route: 048
     Dates: start: 20200330, end: 20200630
  28. GLARVIA [Concomitant]
     Indication: DIABETES MELLITUS
     Dosage: 16 UNITS
     Route: 058
     Dates: start: 20200218, end: 20200330
  29. LIVOLIN FORTE [Concomitant]
     Indication: SUPPORTIVE CARE
     Route: 048
     Dates: start: 20200218
  30. AMLODIPINE [Concomitant]
     Active Substance: AMLODIPINE BESYLATE
     Indication: HYPERTENSION
     Route: 048
     Dates: start: 20180622
  31. ARIPEN [Concomitant]
     Indication: MENTAL DISORDER
     Route: 048
     Dates: start: 20191017
  32. MIRTAZAPINE. [Concomitant]
     Active Substance: MIRTAZAPINE
     Indication: MENTAL DISORDER
     Route: 048
     Dates: start: 20191017

REACTIONS (5)
  - Incorrect dose administered [Unknown]
  - Intentional product use issue [Unknown]
  - Chronic kidney disease [Not Recovered/Not Resolved]
  - Off label use [Unknown]
  - Electrocardiogram QT prolonged [Recovered/Resolved]

NARRATIVE: CASE EVENT DATE: 20191114
